FAERS Safety Report 4273227-X (Version None)
Quarter: 2004Q1

REPORT INFORMATION
  Report Type: 
  Country: None (occurrence: None)
  Receive Date: 20040116
  Receipt Date: 20031225
  Transmission Date: 20041129
  Serious: Yes (Life-Threatening)
  Sender: FDA-Public Use
  Company Number: JP-ROCHE-354859

PATIENT
  Age: 50 Year
  Sex: Female

DRUGS (3)
  1. ROCEPHIN [Suspect]
     Dosage: ROUTE WAS VIA DRIP.
     Route: 050
     Dates: start: 20030820, end: 20030825
  2. PIPERACILLIN SODIUM [Suspect]
     Indication: DRUG USE FOR UNKNOWN INDICATION
     Dosage: FORMULATION REPORTED AS DRIP.
     Route: 050
     Dates: start: 20030828, end: 20030908
  3. DEPAKENE [Concomitant]
     Route: 048
     Dates: start: 19990726

REACTIONS (2)
  - CHOLECYSTITIS [None]
  - PANCYTOPENIA [None]
